FAERS Safety Report 17141377 (Version 1)
Quarter: 2019Q4

REPORT INFORMATION
  Report Type: Report from Study
  Country: DE (occurrence: DE)
  Receive Date: 20191211
  Receipt Date: 20191211
  Transmission Date: 20200122
  Serious: Yes (Other)
  Sender: FDA-Public Use
  Company Number: PHHY2018DE066098

PATIENT
  Sex: Female
  Weight: 55 kg

DRUGS (11)
  1. GILENYA [Suspect]
     Active Substance: FINGOLIMOD HYDROCHLORIDE
     Indication: MULTIPLE SCLEROSIS
     Dosage: 0.5 MG, QD
     Route: 048
     Dates: start: 20160216
  2. MODAFINIL. [Concomitant]
     Active Substance: MODAFINIL
     Indication: FATIGUE
     Dosage: UNK
     Route: 065
  3. BACLOFEN. [Concomitant]
     Active Substance: BACLOFEN
     Indication: MUSCLE SPASTICITY
     Dosage: 10 MG, UNK
     Route: 065
     Dates: start: 20151116, end: 20161015
  4. BACLOFEN. [Concomitant]
     Active Substance: BACLOFEN
     Dosage: UNK
     Route: 065
     Dates: start: 20161016
  5. VITAMIN B12 [Concomitant]
     Active Substance: CYANOCOBALAMIN
     Indication: PROPHYLAXIS
     Dosage: 1000 UG, UNK
     Route: 065
     Dates: start: 20180215, end: 20181120
  6. FAMPYRA [Concomitant]
     Active Substance: DALFAMPRIDINE
     Indication: MOBILITY DECREASED
     Dosage: 20 MG, UNK
     Route: 065
     Dates: start: 20180215
  7. GABAPENTINE [Concomitant]
     Active Substance: GABAPENTIN
     Indication: DYSAESTHESIA
     Dosage: 3 DF (400 MG), UNK
     Route: 065
     Dates: start: 2006
  8. VIGIL [Concomitant]
     Indication: FATIGUE
     Dosage: 100 MG, UNK
     Route: 065
     Dates: start: 2007
  9. VITAMIN B12 [Concomitant]
     Active Substance: CYANOCOBALAMIN
     Dosage: 500 UG
     Route: 065
     Dates: start: 20181121
  10. DEKRISTOL [Concomitant]
     Active Substance: CHOLECALCIFEROL
     Dosage: 20000 IU, UNK
     Route: 065
     Dates: start: 20180221
  11. DEKRISTOL [Concomitant]
     Active Substance: CHOLECALCIFEROL
     Indication: PROPHYLAXIS
     Dosage: 40000 IU, UNK
     Route: 065
     Dates: start: 20180215, end: 20181120

REACTIONS (2)
  - Lymphopenia [Recovered/Resolved]
  - White blood cell count decreased [Unknown]

NARRATIVE: CASE EVENT DATE: 20180731
